FAERS Safety Report 4966585-1 (Version None)
Quarter: 2006Q2

REPORT INFORMATION
  Report Type: 
  Country: None (occurrence: None)
  Receive Date: 20060407
  Receipt Date: 20060315
  Transmission Date: 20061013
  Serious: Yes (Hospitalization)
  Sender: FDA-Public Use
  Company Number: IT-AVENTIS-200612521GDDC

PATIENT
  Age: 45 Year
  Sex: Female

DRUGS (2)
  1. KETEK [Suspect]
     Indication: EAR INFECTION
     Route: 048
     Dates: start: 20060113, end: 20060113
  2. LOCALYN [Concomitant]
     Indication: EAR INFECTION
     Route: 061
     Dates: start: 20060113, end: 20060113

REACTIONS (4)
  - CHOLECYSTITIS [None]
  - HEPATIC STEATOSIS [None]
  - HEPATITIS [None]
  - JAUNDICE [None]
